FAERS Safety Report 11694422 (Version 1)
Quarter: 2015Q4

REPORT INFORMATION
  Report Type: Spontaneous
  Country: BR (occurrence: BR)
  Receive Date: 20151103
  Receipt Date: 20151103
  Transmission Date: 20160304
  Serious: Yes (Other)
  Sender: FDA-Public Use
  Company Number: BR-JNJFOC-20151100190

PATIENT
  Age: 54 Year
  Sex: Female

DRUGS (1)
  1. SIMPONI [Suspect]
     Active Substance: GOLIMUMAB
     Indication: RHEUMATOID ARTHRITIS
     Route: 058
     Dates: start: 20140910

REACTIONS (1)
  - Mastitis [Unknown]

NARRATIVE: CASE EVENT DATE: 201508
